FAERS Safety Report 15681379 (Version 1)
Quarter: 2018Q4

REPORT INFORMATION
  Report Type: Spontaneous
  Country: US (occurrence: US)
  Receive Date: 20181120
  Receipt Date: 20181120
  Transmission Date: 20190205
  Serious: Yes (Hospitalization)
  Sender: FDA-Public Use
  Company Number: None

PATIENT
  Age: 30 Year
  Sex: Male

DRUGS (5)
  1. PROZAC 20MG BID [Concomitant]
  2. ZYPREXA 5MG PM [Concomitant]
  3. HALOPERIDOL 5MG [Suspect]
     Active Substance: HALOPERIDOL
     Indication: AGITATION
     Route: 048
     Dates: start: 20181021, end: 20181021
  4. PRAZOSIN 2MG PM [Concomitant]
  5. CLONIDINE 0.2MG AM [Concomitant]

REACTIONS (3)
  - Muscle spasms [None]
  - Aphasia [None]
  - Swollen tongue [None]

NARRATIVE: CASE EVENT DATE: 20181021
